FAERS Safety Report 9973363 (Version 3)
Quarter: 2016Q1

REPORT INFORMATION
  Report Type: Report from Study
  Country: JP (occurrence: JP)
  Receive Date: 20140306
  Receipt Date: 20160224
  Transmission Date: 20160526
  Serious: Yes (Life-Threatening, Hospitalization)
  Sender: FDA-Public Use
  Company Number: JP-PFIZER INC-2014058808

PATIENT
  Age: 44 Year
  Sex: Male
  Weight: 61 kg

DRUGS (13)
  1. NAIXAN [Concomitant]
     Active Substance: NAPROXEN SODIUM
     Dosage: 100 MG, 3X/DAY
     Route: 048
     Dates: end: 20120829
  2. NAUZELIN [Concomitant]
     Active Substance: DOMPERIDONE
     Dosage: 10 MG, AS NEEDED
     Route: 048
     Dates: start: 20120828
  3. OXYCONTIN [Concomitant]
     Active Substance: OXYCODONE HYDROCHLORIDE
     Dosage: 10 MG, 2X/DAY
     Route: 048
  4. WYPAX [Concomitant]
     Active Substance: LORAZEPAM
     Dosage: 0.5 MG, AS NEEDED
     Route: 048
     Dates: start: 20120824, end: 20120917
  5. MAGMITT [Concomitant]
     Active Substance: MAGNESIUM OXIDE
     Dosage: 250 MG, AS NEEDED
     Route: 048
  6. SELBEX [Concomitant]
     Active Substance: TEPRENONE
     Dosage: 50 MG, AS NEEDED
     Route: 048
  7. SENNOSIDE [Concomitant]
     Active Substance: SENNOSIDES
     Dosage: 12 MG, AS NEEDED
     Route: 048
     Dates: start: 20120829
  8. OXINORM [Concomitant]
     Active Substance: OXYCODONE HYDROCHLORIDE
     Dosage: 2.5 MG, AS NEEDED
     Route: 048
  9. VOLTAREN [Concomitant]
     Active Substance: DICLOFENAC SODIUM
     Dosage: 25 MG, AS NEEDED
     Route: 048
  10. XALKORI [Suspect]
     Active Substance: CRIZOTINIB
     Indication: NON-SMALL CELL LUNG CANCER
     Dosage: 250 MG, 2X/DAY
     Route: 048
     Dates: start: 20120823, end: 20120910
  11. BIO-THREE [Concomitant]
     Active Substance: HERBALS
     Dosage: UNK, AS NEEDED
     Route: 048
     Dates: start: 20120823, end: 20120823
  12. AMLODIN [Concomitant]
     Active Substance: AMLODIPINE BESYLATE
     Dosage: 2.5 MG, 1X/DAY
     Route: 048
     Dates: end: 20120919
  13. CODEINE PHOSPHATE [Concomitant]
     Active Substance: CODEINE PHOSPHATE
     Dosage: 20 MG, AS NEEDED
     Route: 048
     Dates: start: 20120821, end: 20120906

REACTIONS (5)
  - Febrile neutropenia [Recovered/Resolved]
  - Hepatic function abnormal [Recovered/Resolved]
  - Neutrophil count decreased [Recovered/Resolved]
  - Infectious pleural effusion [Recovering/Resolving]
  - Pyrexia [Recovered/Resolved]

NARRATIVE: CASE EVENT DATE: 20120827
